FAERS Safety Report 20200701 (Version 1)
Quarter: 2021Q4

REPORT INFORMATION
  Report Type: Report from Study
  Country: FR (occurrence: FR)
  Receive Date: 20211217
  Receipt Date: 20211217
  Transmission Date: 20220304
  Serious: Yes (Hospitalization, Other)
  Sender: FDA-Public Use
  Company Number: FR-JNJFOC-20211222347

PATIENT

DRUGS (2)
  1. REMICADE [Suspect]
     Active Substance: INFLIXIMAB
     Indication: Crohn^s disease
     Route: 042
  2. AZATHIOPRINE [Suspect]
     Active Substance: AZATHIOPRINE
     Indication: Crohn^s disease
     Route: 065

REACTIONS (7)
  - Cervical dysplasia [Unknown]
  - Cholecystitis acute [Unknown]
  - Basal cell carcinoma [Unknown]
  - Cystitis [Unknown]
  - Erysipelas [Unknown]
  - Varicella zoster virus infection [Unknown]
  - Respiratory tract infection [Unknown]
